FAERS Safety Report 10931020 (Version 1)
Quarter: 2015Q1

REPORT INFORMATION
  Report Type: Spontaneous
  Country: US (occurrence: None)
  Receive Date: 20150225
  Receipt Date: 20150225
  Transmission Date: 20150721
  Serious: Yes (Other)
  Sender: FDA-Public Use
  Company Number: 2014-US-012916

PATIENT
  Sex: Male

DRUGS (3)
  1. ZOFRAN (ONDANSETRON HYDROCHLORIDE) [Concomitant]
  2. PRIALT [Suspect]
     Active Substance: ZICONOTIDE ACETATE
     Indication: PAIN
     Route: 037
     Dates: start: 20140715, end: 20140728
  3. OXYCONTIN [Concomitant]
     Active Substance: OXYCODONE HYDROCHLORIDE

REACTIONS (3)
  - Psychotic disorder [None]
  - Hallucination [None]
  - Mental impairment [None]

NARRATIVE: CASE EVENT DATE: 20140923
